FAERS Safety Report 25888106 (Version 1)
Quarter: 2025Q4

REPORT INFORMATION
  Report Type: Spontaneous
  Country: US (occurrence: US)
  Receive Date: 20251007
  Receipt Date: 20251007
  Transmission Date: 20260118
  Serious: Yes (Hospitalization)
  Sender: STRIDES
  Company Number: US-STRIDES PHARMA UK LTD.-2025SP000106

PATIENT

DRUGS (1)
  1. PREDNISOLONE [Suspect]
     Active Substance: PREDNISOLONE
     Indication: Rheumatoid arthritis
     Dosage: 25 MILLIGRAM, QD (DAILY)
     Route: 065

REACTIONS (5)
  - Peritonitis [Unknown]
  - Infection masked [Unknown]
  - Mediastinitis [Unknown]
  - Diverticulitis intestinal perforated [Unknown]
  - Abscess [Unknown]
